FAERS Safety Report 23799113 (Version 2)
Quarter: 2024Q2

REPORT INFORMATION
  Report Type: Report from Study
  Country: CA (occurrence: CA)
  Receive Date: 20240430
  Receipt Date: 20240506
  Transmission Date: 20240716
  Serious: Yes (Other)
  Sender: FDA-Public Use
  Company Number: CA-ABBVIE-5738610

PATIENT
  Age: 79 Year
  Sex: Male

DRUGS (4)
  1. CARBIDOPA\LEVODOPA [Suspect]
     Active Substance: CARBIDOPA\LEVODOPA
     Indication: Parkinson^s disease
     Dosage: DUODOPA-LEVODOPA 20MG/ML,CARBIDOPAMONOHYDRATE 5MG/ML
     Route: 050
     Dates: start: 20211124
  2. CARBIDOPA\LEVODOPA [Suspect]
     Active Substance: CARBIDOPA\LEVODOPA
  3. Levodopa capsules [Concomitant]
     Indication: Product used for unknown indication
     Dosage: 1/2 - 1 CAPSULE OF LEVODOPA DURING THE NIGHT, SOMETIMES AT 5 AM IF PATIENT WAKES
     Route: 065
  4. CANNABIS SATIVA SUBSP. INDICA TOP [Concomitant]
     Active Substance: CANNABIS SATIVA SUBSP. INDICA TOP
     Indication: Product used for unknown indication
     Dosage: CANNABIS OIL, ?CBD DAYTIME, AND A COMBINATION OF THC AND CBD AT BEDTIME
     Route: 065
     Dates: start: 2017

REACTIONS (5)
  - Cataract [Unknown]
  - Muscle contracture [Unknown]
  - Weight decreased [Not Recovered/Not Resolved]
  - Dyskinesia [Not Recovered/Not Resolved]
  - Hypersomnia [Unknown]

NARRATIVE: CASE EVENT DATE: 20230401
